FAERS Safety Report 23849615 (Version 1)
Quarter: 2024Q2

REPORT INFORMATION
  Report Type: Spontaneous
  Country: US (occurrence: US)
  Receive Date: 20240513
  Receipt Date: 20240513
  Transmission Date: 20240716
  Serious: No
  Sender: FDA-Public Use
  Company Number: US-INCYTE CORPORATION-2024IN004898

PATIENT

DRUGS (1)
  1. JAKAFI [Suspect]
     Active Substance: RUXOLITINIB
     Indication: T-cell prolymphocytic leukaemia
     Dosage: 10 MILLIGRAM, BID
     Route: 048

REACTIONS (2)
  - Dyspnoea [Unknown]
  - Off label use [Unknown]
